FAERS Safety Report 7942502-7 (Version None)
Quarter: 2011Q4

REPORT INFORMATION
  Report Type: 
  Country: None (occurrence: None)
  Receive Date: 20111122
  Receipt Date: 20110817
  Transmission Date: 20120403
  Serious: Yes (Other)
  Sender: FDA-Public Use
  Company Number: PHEH2011US01951

PATIENT
  Age: 53 Year
  Sex: Female

DRUGS (6)
  1. HYDROCHLOROTHIAZIDE [Concomitant]
  2. GILENYA [Suspect]
     Indication: MULTIPLE SCLEROSIS
     Dosage: 0.5 MG, QD, ORAL
     Route: 048
     Dates: start: 20110816, end: 20110819
  3. TIZANIDINE HCL [Concomitant]
  4. SIMVASTATIN [Concomitant]
  5. AMITRIPTYLINE HCL [Concomitant]
  6. ATENOLOL [Concomitant]

REACTIONS (4)
  - HEART RATE IRREGULAR [None]
  - HEART RATE DECREASED [None]
  - BLOOD PRESSURE INCREASED [None]
  - SOMNOLENCE [None]
